FAERS Safety Report 18960299 (Version 2)
Quarter: 2021Q1

REPORT INFORMATION
  Report Type: Report from Study
  Country: US (occurrence: US)
  Receive Date: 20210302
  Receipt Date: 20210324
  Transmission Date: 20210420
  Serious: Yes (Hospitalization, Other)
  Sender: FDA-Public Use
  Company Number: US-TEVA-2021-US-1884229

PATIENT
  Age: 44 Year
  Sex: Female

DRUGS (1)
  1. COPAXONE [Suspect]
     Active Substance: GLATIRAMER ACETATE
     Dosage: FORM STRENGTH: UNKNOWN
     Route: 065
     Dates: start: 20210105, end: 20210202

REACTIONS (8)
  - Balance disorder [Recovering/Resolving]
  - Asthenia [Unknown]
  - Drug hypersensitivity [Unknown]
  - Multiple sclerosis [Unknown]
  - Skin discolouration [Unknown]
  - Multiple sclerosis relapse [Unknown]
  - Fall [Unknown]
  - Gait disturbance [Not Recovered/Not Resolved]

NARRATIVE: CASE EVENT DATE: 2021
